FAERS Safety Report 4971871-5 (Version None)
Quarter: 2006Q2

REPORT INFORMATION
  Report Type: 
  Country: None (occurrence: None)
  Receive Date: 20060413
  Receipt Date: 20050414
  Transmission Date: 20061013
  Serious: Yes (Hospitalization, Disabling)
  Sender: FDA-Public Use
  Company Number: US-MERCK-0504USA02587

PATIENT
  Age: 27 Year
  Sex: Male
  Weight: 118 kg

DRUGS (5)
  1. VIOXX [Suspect]
     Indication: NECK INJURY
     Route: 048
     Dates: start: 19990101, end: 20010101
  2. VIOXX [Suspect]
     Indication: JOINT INJURY
     Route: 048
     Dates: start: 19990101, end: 20010101
  3. FLEXERIL [Concomitant]
     Route: 048
  4. SKELAXIN [Concomitant]
     Route: 065
     Dates: start: 20000101
  5. METOPROLOL [Concomitant]
     Route: 065

REACTIONS (10)
  - CARDIAC DISORDER [None]
  - CHEST PAIN [None]
  - DIZZINESS [None]
  - DYSPNOEA [None]
  - HEART RATE INCREASED [None]
  - HYPERTENSION [None]
  - OVERDOSE [None]
  - PALPITATIONS [None]
  - PULSE ABNORMAL [None]
  - RENAL DISORDER [None]
